FAERS Safety Report 5802383-4 (Version None)
Quarter: 2008Q3

REPORT INFORMATION
  Report Type: 
  Country: None (occurrence: None)
  Receive Date: 20080707
  Receipt Date: 20080625
  Transmission Date: 20090109
  Serious: Yes (Other)
  Sender: FDA-Public Use
  Company Number: US-ABBOTT-08P-163-0459524-00

PATIENT
  Sex: Male
  Weight: 113.6 kg

DRUGS (2)
  1. TRICOR [Suspect]
     Indication: BLOOD TRIGLYCERIDES INCREASED
     Route: 048
  2. TRICOR [Suspect]
     Route: 048
     Dates: end: 20080616

REACTIONS (5)
  - DIARRHOEA [None]
  - FAECAL INCONTINENCE [None]
  - HIP FRACTURE [None]
  - LIVER FUNCTION TEST ABNORMAL [None]
  - MYALGIA [None]
